FAERS Safety Report 8439197-5 (Version None)
Quarter: 2012Q2

REPORT INFORMATION
  Report Type: 
  Country: None (occurrence: None)
  Receive Date: 20120615
  Receipt Date: 20120607
  Transmission Date: 20120825
  Serious: Yes (Other)
  Sender: FDA-Public Use
  Company Number: US-ABBOTT-12P-163-0929907-00

PATIENT
  Sex: Male
  Weight: 77.18 kg

DRUGS (5)
  1. HYDROCHLOROTHIAZIDE [Concomitant]
     Indication: HYPERTENSION
  2. LEUCOVORIN CALCIUM [Concomitant]
     Indication: PRODUCT USED FOR UNKNOWN INDICATION
     Dosage: DAILY
  3. HYDRALAZINE HYDROCHLORIDE [Concomitant]
     Indication: PRODUCT USED FOR UNKNOWN INDICATION
  4. HUMIRA [Suspect]
     Indication: RHEUMATOID ARTHRITIS
     Route: 058
     Dates: start: 20120101, end: 20120201
  5. FINASTERIDE [Concomitant]
     Indication: PRODUCT USED FOR UNKNOWN INDICATION

REACTIONS (13)
  - ANAEMIA [None]
  - SMALL CELL LUNG CANCER STAGE UNSPECIFIED [None]
  - ARTHRALGIA [None]
  - DECREASED APPETITE [None]
  - THROMBOCYTOPENIA [None]
  - JOINT SWELLING [None]
  - WEIGHT DECREASED [None]
  - ABDOMINAL PAIN [None]
  - NEUTROPENIA [None]
  - METASTASES TO LIVER [None]
  - CONSTIPATION [None]
  - HEPATOMEGALY [None]
  - HAEMATOCHEZIA [None]
